FAERS Safety Report 17179710 (Version 1)
Quarter: 2019Q4

REPORT INFORMATION
  Report Type: Spontaneous
  Country: DK (occurrence: DK)
  Receive Date: 20191219
  Receipt Date: 20191219
  Transmission Date: 20200122
  Serious: Yes (Other)
  Sender: FDA-Public Use
  Company Number: DK-MYLANLABS-2019M1111046

PATIENT
  Sex: Male

DRUGS (9)
  1. CLOZAPINE. [Suspect]
     Active Substance: CLOZAPINE
     Indication: SCHIZOPHRENIA
     Dosage: 50 MILLIGRAM, QD
     Route: 065
  2. CLOZAPIN HEXAL [Suspect]
     Active Substance: CLOZAPINE
     Indication: SCHIZOPHRENIA
     Dosage: 400 MILLIGRAM, QD
     Route: 065
  3. BENDROZA [Concomitant]
     Active Substance: BENDROFLUMETHIAZIDE\POTASSIUM CHLORIDE
     Indication: PRODUCT USED FOR UNKNOWN INDICATION
     Dosage: UNK
     Route: 065
  4. MOVICOL [Concomitant]
     Active Substance: POLYETHYLENE GLYCOL 3350\POTASSIUM CHLORIDE\SODIUM BICARBONATE\SODIUM CHLORIDE
     Indication: PRODUCT USED FOR UNKNOWN INDICATION
     Dosage: UNK
     Route: 065
  5. CLOZAPIN HEXAL [Suspect]
     Active Substance: CLOZAPINE
     Dosage: 100 MILLIGRAM
     Route: 065
  6. COMBAR [Concomitant]
     Active Substance: MIRTAZAPINE
     Indication: PRODUCT USED FOR UNKNOWN INDICATION
     Dosage: UNK
     Route: 065
  7. FINIGEN [Concomitant]
     Indication: PRODUCT USED FOR UNKNOWN INDICATION
     Dosage: UNK
     Route: 065
  8. IBUMETIN [Concomitant]
     Active Substance: IBUPROFEN
     Indication: PAIN
     Dosage: UNK
     Route: 065
  9. CLOZAPINE. [Suspect]
     Active Substance: CLOZAPINE
     Dosage: 25 MILLIGRAM
     Route: 065

REACTIONS (3)
  - Schizophrenia [Unknown]
  - Drug ineffective [Unknown]
  - Antipsychotic drug level decreased [Not Recovered/Not Resolved]

NARRATIVE: CASE EVENT DATE: 20180403
